FAERS Safety Report 8552335-9 (Version None)
Quarter: 2012Q3

REPORT INFORMATION
  Report Type: 
  Country: None (occurrence: None)
  Receive Date: 20120718
  Receipt Date: 20091208
  Transmission Date: 20120928
  Serious: Yes (Hospitalization)
  Sender: FDA-Public Use
  Company Number: DSA_58462_2012

PATIENT
  Age: 47 Year
  Sex: Female
  Weight: 66 kg

DRUGS (3)
  1. FLUOROURACIL [Suspect]
     Indication: BREAST CANCER
     Dosage: (DF; EVERY CYCLE)
     Dates: start: 20091106, end: 20091106
  2. EPIRUBICIN [Suspect]
     Indication: BREAST CANCER
     Dosage: (DF; EVERY CYCLE)
     Dates: start: 20091106, end: 20091106
  3. CYCLOPHOSPHAMIDE [Suspect]
     Indication: BREAST CANCER
     Dosage: (DF; EVERY CYCLE)
     Dates: start: 20091106, end: 20091106

REACTIONS (3)
  - OROPHARYNGEAL PAIN [None]
  - COUGH [None]
  - FEBRILE NEUTROPENIA [None]
